FAERS Safety Report 20988207 (Version 2)
Quarter: 2022Q3

REPORT INFORMATION
  Report Type: Report from Study
  Country: US (occurrence: US)
  Receive Date: 20220621
  Receipt Date: 20220907
  Transmission Date: 20221027
  Serious: Yes (Other)
  Sender: FDA-Public Use
  Company Number: US-XERIS PHARMACEUTICALS-2022XER00066

PATIENT
  Age: 62 Year
  Sex: Female

DRUGS (4)
  1. KEVEYIS [Suspect]
     Active Substance: DICHLORPHENAMIDE
     Indication: Paralysis
     Dosage: ONE TABLET (50 MG), 1X/DAY
     Route: 048
     Dates: start: 20201228
  2. KEVEYIS [Suspect]
     Active Substance: DICHLORPHENAMIDE
     Dosage: ONE TABLET (50 MG), 1X/DAY
     Route: 048
     Dates: end: 2022
  3. KEVEYIS [Suspect]
     Active Substance: DICHLORPHENAMIDE
     Dosage: ONE TABLET (50 MG), 2X/DAY
     Route: 048
     Dates: start: 2022, end: 2022
  4. KEVEYIS [Suspect]
     Active Substance: DICHLORPHENAMIDE
     Dosage: ONE TABLET (50 MG), 1X/DAY
     Route: 048
     Dates: start: 2022

REACTIONS (20)
  - Loss of consciousness [Unknown]
  - Hallucination [Unknown]
  - Rhinorrhoea [Unknown]
  - Gastric disorder [Recovering/Resolving]
  - Memory impairment [Recovering/Resolving]
  - Feeling abnormal [Unknown]
  - Fibromyalgia [Not Recovered/Not Resolved]
  - Asthenia [Recovering/Resolving]
  - Muscular weakness [Recovering/Resolving]
  - Red blood cell abnormality [Not Recovered/Not Resolved]
  - Migraine [Not Recovered/Not Resolved]
  - Dysstasia [Recovering/Resolving]
  - Neck pain [Not Recovered/Not Resolved]
  - Joint stiffness [Not Recovered/Not Resolved]
  - Dizziness [Recovering/Resolving]
  - Headache [Not Recovered/Not Resolved]
  - Presyncope [Unknown]
  - Muscle twitching [Not Recovered/Not Resolved]
  - Muscle spasms [Not Recovered/Not Resolved]
  - Unevaluable event [Recovering/Resolving]

NARRATIVE: CASE EVENT DATE: 20220501
